FAERS Safety Report 9395611 (Version 3)
Quarter: 2013Q3

REPORT INFORMATION
  Report Type: Spontaneous
  Country: DE (occurrence: None)
  Receive Date: 20130705
  Receipt Date: 20130823
  Transmission Date: 20140515
  Serious: Yes (Hospitalization)
  Sender: FDA-Public Use
  Company Number: DE-011954

PATIENT
  Age: 68 Year
  Sex: Male

DRUGS (8)
  1. FIRMAGON [Suspect]
     Indication: PROSTATE CANCER
     Route: 058
     Dates: start: 20121113, end: 20121113
  2. TAXOTERE [Suspect]
     Indication: PROSTATE CANCER
     Dosage: 165 UG TOAL
     Dates: start: 20130514, end: 20130514
  3. BICALUTAMID [Concomitant]
  4. ASS [Concomitant]
  5. PANTOPRAZOL [Concomitant]
  6. TOREM /01036501/ [Concomitant]
  7. PARACETAMOL [Concomitant]
  8. TAMSULOSIN [Concomitant]

REACTIONS (4)
  - Injection site abscess [None]
  - Prostate cancer [None]
  - Malignant neoplasm progression [None]
  - Purulence [None]
